FAERS Safety Report 14391552 (Version 2)
Quarter: 2018Q1

REPORT INFORMATION
  Report Type: Report from Study
  Country: CR (occurrence: CR)
  Receive Date: 20180116
  Receipt Date: 20180202
  Transmission Date: 20180509
  Serious: Yes (Life-Threatening, Hospitalization, Other)
  Sender: FDA-Public Use
  Company Number: PHHY2017CR192036

PATIENT
  Age: 55 Year
  Sex: Female

DRUGS (5)
  1. LYRICA [Concomitant]
     Active Substance: PREGABALIN
     Indication: PRODUCT USED FOR UNKNOWN INDICATION
     Route: 065
  2. FENDIL [Concomitant]
     Indication: PRODUCT USED FOR UNKNOWN INDICATION
     Route: 065
  3. SCAPHO [Suspect]
     Active Substance: SECUKINUMAB
     Indication: PRODUCT USED FOR UNKNOWN INDICATION
     Route: 065
  4. NEURONTIN [Concomitant]
     Active Substance: GABAPENTIN
     Indication: PRODUCT USED FOR UNKNOWN INDICATION
     Route: 065
  5. ZITROMAX [Concomitant]
     Active Substance: AZITHROMYCIN
     Indication: PRODUCT USED FOR UNKNOWN INDICATION
     Route: 065

REACTIONS (36)
  - Emotional disorder [Unknown]
  - Malaise [Unknown]
  - Inflammation [Unknown]
  - Mouth injury [Unknown]
  - Panic attack [Unknown]
  - Chest discomfort [Unknown]
  - Feeling abnormal [Unknown]
  - Decreased appetite [Unknown]
  - Pain [Unknown]
  - Stress [Unknown]
  - Dysgeusia [Unknown]
  - Pharyngitis [Unknown]
  - Spinal pain [Unknown]
  - Paralysis [Unknown]
  - Pain in extremity [Unknown]
  - Peripheral swelling [Unknown]
  - Aphonia [Unknown]
  - Fatigue [Unknown]
  - Hypoacusis [Unknown]
  - Obesity [Unknown]
  - Ear pain [Unknown]
  - Poisoning [Unknown]
  - Hypoxia [Unknown]
  - Abdominal discomfort [Unknown]
  - Laziness [Unknown]
  - Dysphonia [Unknown]
  - Drug ineffective [Unknown]
  - Oedema [Unknown]
  - Nausea [Unknown]
  - Body temperature increased [Unknown]
  - Limb discomfort [Unknown]
  - Coma [Unknown]
  - Decreased interest [Unknown]
  - Weight bearing difficulty [Unknown]
  - Depression [Unknown]
  - Sensitivity to weather change [Unknown]
